FAERS Safety Report 11633042 (Version 3)
Quarter: 2015Q4

REPORT INFORMATION
  Report Type: Report from Study
  Country: US (occurrence: US)
  Receive Date: 20151015
  Receipt Date: 20151106
  Transmission Date: 20160304
  Serious: No
  Sender: FDA-Public Use
  Company Number: PHEH2015US020176

PATIENT
  Age: 61 Year
  Sex: Female

DRUGS (2)
  1. COSENTYX [Suspect]
     Active Substance: SECUKINUMAB
     Dosage: 300 MG, QMO
     Route: 058
     Dates: start: 20150917, end: 20150922
  2. COSENTYX [Suspect]
     Active Substance: SECUKINUMAB
     Indication: PRODUCT USED FOR UNKNOWN INDICATION
     Dosage: 300 MG, UNK
     Route: 058

REACTIONS (7)
  - Extrasystoles [Unknown]
  - Rash macular [Not Recovered/Not Resolved]
  - Malaise [Unknown]
  - Cardiac flutter [Unknown]
  - Feeling abnormal [Unknown]
  - Palpitations [Unknown]
  - Rash [Unknown]

NARRATIVE: CASE EVENT DATE: 20150922
